FAERS Safety Report 5340302-8 (Version None)
Quarter: 2007Q2

REPORT INFORMATION
  Report Type: 
  Country: None (occurrence: None)
  Receive Date: 20070531
  Receipt Date: 20070521
  Transmission Date: 20071010
  Serious: Yes (Hospitalization, Other)
  Sender: FDA-Public Use
  Company Number: PHHO2007AR06155

PATIENT
  Age: 69 Year
  Sex: Female

DRUGS (1)
  1. ZELMAC / HTF 919A [Suspect]
     Dosage: 2 TABLETS PER DAY.
     Route: 048
     Dates: start: 20041217

REACTIONS (3)
  - EMPHYSEMA [None]
  - LUNG OPERATION [None]
  - TENDONITIS [None]
